FAERS Safety Report 6095112-3 (Version None)
Quarter: 2009Q1

REPORT INFORMATION
  Report Type: 
  Country: None (occurrence: None)
  Receive Date: 20090227
  Receipt Date: 20080121
  Transmission Date: 20090719
  Serious: Yes (Hospitalization)
  Sender: FDA-Public Use
  Company Number: A0704382A

PATIENT
  Age: 64 Year
  Sex: Female

DRUGS (3)
  1. LAMICTAL [Suspect]
     Dosage: 100MG TWICE PER DAY
     Route: 048
     Dates: start: 20060101, end: 20071201
  2. TOPAMAX [Concomitant]
  3. MYSOLINE [Concomitant]

REACTIONS (3)
  - ADVERSE EVENT [None]
  - RASH ERYTHEMATOUS [None]
  - SKIN ULCER [None]
